FAERS Safety Report 4988175-7 (Version None)
Quarter: 2006Q2

REPORT INFORMATION
  Report Type: 
  Country: None (occurrence: None)
  Receive Date: 20060501
  Receipt Date: 20060414
  Transmission Date: 20061013
  Serious: Yes (Other)
  Sender: FDA-Public Use
  Company Number: JP-MERCK-0604USA04248

PATIENT

DRUGS (5)
  1. PEPCID [Suspect]
     Route: 042
  2. CIPROXAN [Suspect]
     Route: 065
  3. VANCOMYCIN [Suspect]
     Route: 065
  4. ELASPOL [Suspect]
     Route: 065
  5. FOY [Suspect]
     Route: 065

REACTIONS (2)
  - BLOOD CREATINE PHOSPHOKINASE INCREASED [None]
  - GRANULOCYTOPENIA [None]
